FAERS Safety Report 18799347 (Version 1)
Quarter: 2021Q1

REPORT INFORMATION
  Report Type: Spontaneous
  Country: US (occurrence: US)
  Receive Date: 20210128
  Receipt Date: 20210128
  Transmission Date: 20210419
  Serious: Yes (Hospitalization, Other)
  Sender: FDA-Public Use
  Company Number: None

PATIENT
  Age: 76 Year
  Sex: Male
  Weight: 87.1 kg

DRUGS (5)
  1. REMDESIVIR. [Concomitant]
     Active Substance: REMDESIVIR
     Dates: start: 20210106, end: 20210110
  2. METHYLPREDNISOLONE. [Concomitant]
     Active Substance: METHYLPREDNISOLONE
     Dates: start: 20210112, end: 20210127
  3. ZOSYN [Concomitant]
     Active Substance: PIPERACILLIN SODIUM\TAZOBACTAM SODIUM
     Dates: start: 20210120, end: 20210126
  4. DECADRON [Concomitant]
     Active Substance: DEXAMETHASONE
     Dates: start: 20210106, end: 20210112
  5. BARICITINIB. [Suspect]
     Active Substance: BARICITINIB
     Indication: COVID-19
     Route: 048
     Dates: start: 20210106, end: 20210119

REACTIONS (7)
  - Oxygen saturation decreased [None]
  - Pneumothorax spontaneous [None]
  - Pneumonia staphylococcal [None]
  - Haematoma [None]
  - Blood loss anaemia [None]
  - Urinary tract infection enterococcal [None]
  - Urinary tract infection pseudomonal [None]

NARRATIVE: CASE EVENT DATE: 20210116
